FAERS Safety Report 11805672 (Version 1)
Quarter: 2015Q4

REPORT INFORMATION
  Report Type: Spontaneous
  Country: US (occurrence: US)
  Receive Date: 20151207
  Receipt Date: 20151207
  Transmission Date: 20160305
  Serious: No
  Sender: FDA-Public Use
  Company Number: US-LUPIN PHARMACEUTICALS INC.-E2B_00004319

PATIENT
  Sex: Female
  Weight: 44.04 kg

DRUGS (3)
  1. SERTRALINE TABLETS USP 25 MG [Suspect]
     Active Substance: SERTRALINE HYDROCHLORIDE
     Indication: PANIC DISORDER
  2. SERTRALINE TABLETS USP 25 MG [Suspect]
     Active Substance: SERTRALINE HYDROCHLORIDE
     Indication: OBSESSIVE-COMPULSIVE DISORDER
  3. SERTRALINE TABLETS USP 25 MG [Suspect]
     Active Substance: SERTRALINE HYDROCHLORIDE
     Indication: ANXIETY DISORDER
     Dates: start: 20150923, end: 20151005

REACTIONS (2)
  - Drug ineffective [Unknown]
  - School refusal [Unknown]

NARRATIVE: CASE EVENT DATE: 20150923
